FAERS Safety Report 14030776 (Version 1)
Quarter: 2017Q4

REPORT INFORMATION
  Report Type: Spontaneous
  Country: US (occurrence: US)
  Receive Date: 20171002
  Receipt Date: 20171002
  Transmission Date: 20180321
  Serious: Yes (Hospitalization, Other)
  Sender: FDA-Public Use
  Company Number: US-B.I. PHARMACEUTICALS,INC./RIDGEFIELD-2017-BI-052316

PATIENT
  Age: 61 Year
  Sex: Male

DRUGS (5)
  1. LANTUS [Concomitant]
     Active Substance: INSULIN GLARGINE
     Indication: TYPE 2 DIABETES MELLITUS
     Dosage: 45 UNITS TWICE DAILY;  FORM STRENGTH: 45UNITS; FORMULATION: SUBCUTANEOUS
     Route: 058
     Dates: start: 2002
  2. NOVOLOG [Concomitant]
     Active Substance: INSULIN ASPART
     Indication: TYPE 2 DIABETES MELLITUS
     Dosage: 3 TIMES DAILY PER SLIDING SCALE;  FORMULATION: SUBCUTANEOUS;
     Route: 058
     Dates: start: 2007
  3. METFORMIN [Concomitant]
     Active Substance: METFORMIN HYDROCHLORIDE
     Indication: TYPE 2 DIABETES MELLITUS
     Dosage: 2 TABLETS DAILY;  FORM STRENGTH: 500MG; FORMULATION: TABLET
     Route: 048
     Dates: start: 1998
  4. VITAMIN B12 [Concomitant]
     Active Substance: CYANOCOBALAMIN
     Indication: VITAMIN B12 DECREASED
     Route: 065
     Dates: start: 2012
  5. SPIRIVA RESPIMAT [Suspect]
     Active Substance: TIOTROPIUM BROMIDE
     Indication: CHRONIC OBSTRUCTIVE PULMONARY DISEASE
     Dosage: ADMINISTRATION CORRECT? NR(NOT REPORTED)
     Route: 055
     Dates: start: 2012

REACTIONS (13)
  - Pancreatitis [Unknown]
  - Dizziness [Recovered/Resolved]
  - Blood glucose increased [Unknown]
  - Fall [Recovered/Resolved]
  - Wound infection [Recovered/Resolved]
  - Influenza [Recovered/Resolved]
  - Impaired healing [Not Recovered/Not Resolved]
  - Lung infection [Unknown]
  - Loss of consciousness [Recovered/Resolved]
  - Blood glucose decreased [Recovered/Resolved]
  - Contusion [Recovered/Resolved]
  - Wheezing [Not Recovered/Not Resolved]
  - Skin atrophy [Not Recovered/Not Resolved]

NARRATIVE: CASE EVENT DATE: 2012
